FAERS Safety Report 24314051 (Version 1)
Quarter: 2024Q3

REPORT INFORMATION
  Report Type: Other
  Country: US (occurrence: US)
  Receive Date: 20240912
  Receipt Date: 20240912
  Transmission Date: 20241017
  Serious: No
  Sender: SIGMA TAU
  Company Number: US-LEADIANT BIOSCIENCES, INC.-2024LBI000269

PATIENT
  Sex: Male

DRUGS (1)
  1. MATULANE [Suspect]
     Active Substance: PROCARBAZINE HYDROCHLORIDE
     Indication: Brain neoplasm malignant
     Dosage: TAKE 2 CAPSULES (100MG TOTAL) DAILY FOR 14 DAYS ON DAY 8 THROUGH DAY 21 OF EACH 42-DAY CYCLE
     Dates: start: 20240123

REACTIONS (1)
  - Platelet count decreased [Unknown]
